FAERS Safety Report 12598681 (Version 1)
Quarter: 2016Q3

REPORT INFORMATION
  Report Type: Spontaneous
  Country: TR (occurrence: TR)
  Receive Date: 20160726
  Receipt Date: 20160726
  Transmission Date: 20161109
  Serious: Yes (Life-Threatening, Other)
  Sender: FDA-Public Use
  Company Number: TR-BAXTER-2016BAX038623

PATIENT
  Age: 43 Year
  Sex: Male

DRUGS (11)
  1. HOLOXAN 2 G IV [Suspect]
     Active Substance: IFOSFAMIDE
     Indication: TESTICULAR SEMINOMA (PURE)
  2. BLEOMYCIN [Concomitant]
     Active Substance: BLEOMYCIN SULFATE
     Indication: TESTICULAR SEMINOMA (PURE)
     Route: 042
  3. GRANULOCYTE COLONY-STIMULATING FACTOR [Suspect]
     Active Substance: GRANULOCYTE COLONY-STIMULATING FACTOR NOS
     Indication: PROPHYLAXIS
     Dosage: 480 MICROGRAM/DAY
     Route: 058
  4. CISPLATIN. [Suspect]
     Active Substance: CISPLATIN
     Indication: REFRACTORY CANCER
     Route: 065
  5. PACLITAXEL. [Suspect]
     Active Substance: PACLITAXEL
     Indication: REFRACTORY CANCER
     Route: 065
  6. MESNA. [Concomitant]
     Active Substance: MESNA
     Indication: REFRACTORY CANCER
  7. PACLITAXEL. [Suspect]
     Active Substance: PACLITAXEL
     Indication: TESTICULAR SEMINOMA (PURE)
  8. ETOPOSIDE. [Concomitant]
     Active Substance: ETOPOSIDE
     Indication: TESTICULAR SEMINOMA (PURE)
     Route: 042
  9. CISPLATIN. [Suspect]
     Active Substance: CISPLATIN
     Indication: TESTICULAR SEMINOMA (PURE)
     Route: 042
  10. MESNA. [Concomitant]
     Active Substance: MESNA
     Indication: TESTICULAR SEMINOMA (PURE)
     Route: 065
  11. HOLOXAN 2 G IV [Suspect]
     Active Substance: IFOSFAMIDE
     Indication: REFRACTORY CANCER
     Route: 065

REACTIONS (2)
  - Thrombotic thrombocytopenic purpura [Recovered/Resolved]
  - Febrile neutropenia [Recovered/Resolved]
